FAERS Safety Report 19361985 (Version 2)
Quarter: 2021Q4

REPORT INFORMATION
  Report Type: Spontaneous
  Country: DE (occurrence: DE)
  Receive Date: 20210603
  Receipt Date: 20211021
  Transmission Date: 20220303
  Serious: Yes (Other)
  Sender: FDA-Public Use
  Company Number: None

PATIENT
  Age: 45 Year
  Sex: Female

DRUGS (2)
  1. IMBRUVICA [Suspect]
     Active Substance: IBRUTINIB
     Indication: Product used for unknown indication
     Dosage: 1X1
     Route: 048
     Dates: start: 2016
  2. FERINJECT [Suspect]
     Active Substance: FERRIC CARBOXYMALTOSE
     Indication: Blood iron increased
     Dosage: 1X1?DOSAGE FORM- SOLUTION FOR INJECTION/INFUSION
     Route: 065
     Dates: start: 2019

REACTIONS (2)
  - Hydrocephalus [Unknown]
  - Blood pressure increased [Recovered/Resolved]
